FAERS Safety Report 5823164-1 (Version None)
Quarter: 2008Q3

REPORT INFORMATION
  Report Type: 
  Country: None (occurrence: None)
  Receive Date: 20080725
  Receipt Date: 20080717
  Transmission Date: 20090109
  Serious: Yes (Hospitalization)
  Sender: FDA-Public Use
  Company Number: PHHY2008IT14533

PATIENT
  Sex: Female

DRUGS (1)
  1. VOLTAREN [Suspect]
     Indication: HEADACHE
     Dosage: 2 POSOLOGIC UNITS PER DAY
     Route: 048
     Dates: start: 20080703, end: 20080703

REACTIONS (2)
  - DYSPHAGIA [None]
  - FACE OEDEMA [None]
